FAERS Safety Report 15675918 (Version 1)
Quarter: 2018Q4

REPORT INFORMATION
  Report Type: Spontaneous
  Country: IT (occurrence: IT)
  Receive Date: 20181130
  Receipt Date: 20181130
  Transmission Date: 20190205
  Serious: Yes (Hospitalization)
  Sender: FDA-Public Use
  Company Number: IT-PFIZER INC-2018491701

PATIENT
  Sex: Female
  Weight: 4 kg

DRUGS (1)
  1. CEFAMEZIN [Suspect]
     Active Substance: CEFAZOLIN
     Indication: STREPTOCOCCUS TEST POSITIVE
     Dosage: 2 G, SINGLE
     Route: 064
     Dates: start: 20180201, end: 20180201

REACTIONS (3)
  - Maternal exposure during pregnancy [Recovered/Resolved]
  - Bradycardia foetal [Recovered/Resolved]
  - Meconium aspiration syndrome [Recovered/Resolved]

NARRATIVE: CASE EVENT DATE: 20180201
